FAERS Safety Report 23474183 (Version 1)
Quarter: 2024Q1

REPORT INFORMATION
  Report Type: Spontaneous
  Country: CN (occurrence: CN)
  Receive Date: 20240204
  Receipt Date: 20240204
  Transmission Date: 20240409
  Serious: Yes (Hospitalization)
  Sender: FDA-Public Use
  Company Number: CN-JNJFOC-20240173865

PATIENT
  Age: 67 Year
  Sex: Male

DRUGS (6)
  1. DARZALEX [Suspect]
     Active Substance: DARATUMUMAB
     Indication: Plasma cell myeloma
     Dosage: D1, 8,15, 22
     Route: 041
     Dates: start: 20231010, end: 20231010
  2. CARFILZOMIB [Suspect]
     Active Substance: CARFILZOMIB
     Indication: Plasma cell myeloma
     Dosage: D1
     Route: 041
     Dates: start: 20231010, end: 20231010
  3. CARFILZOMIB [Suspect]
     Active Substance: CARFILZOMIB
     Dosage: D8
     Route: 041
  4. CARFILZOMIB [Suspect]
     Active Substance: CARFILZOMIB
     Dosage: D15
     Route: 041
  5. DEXAMETHASONE ACETATE [Suspect]
     Active Substance: DEXAMETHASONE ACETATE
     Indication: Plasma cell myeloma
     Dosage: D1, 8, 15, 22
     Route: 048
     Dates: start: 20231010, end: 20231010
  6. CYCLOPHOSPHAMIDE [Suspect]
     Active Substance: CYCLOPHOSPHAMIDE
     Indication: Plasma cell myeloma
     Dosage: D1, 8, 15, 22
     Route: 042
     Dates: start: 20231010, end: 20231010

REACTIONS (2)
  - Agranulocytosis [Recovering/Resolving]
  - Pyrexia [Recovering/Resolving]

NARRATIVE: CASE EVENT DATE: 20231017
